FAERS Safety Report 6133990-X (Version None)
Quarter: 2009Q1

REPORT INFORMATION
  Report Type: 
  Country: None (occurrence: None)
  Receive Date: 20090326
  Receipt Date: 20090320
  Transmission Date: 20090719
  Serious: Yes (Hospitalization)
  Sender: FDA-Public Use
  Company Number: FR-WYE-G03360609

PATIENT
  Sex: Female

DRUGS (10)
  1. EFFEXOR [Suspect]
     Indication: PSYCHOTIC DISORDER
     Route: 048
     Dates: end: 20090201
  2. TERCIAN [Suspect]
     Dosage: 100 MG TOTAL DAILY
     Route: 048
     Dates: end: 20090201
  3. TERCIAN [Suspect]
     Dosage: 62.5 MG TOTAL DAILY
     Route: 048
     Dates: start: 20090201
  4. PARKINANE LP [Concomitant]
     Route: 048
  5. THERALENE [Suspect]
     Indication: PSYCHOTIC DISORDER
     Route: 048
  6. SERESTA [Concomitant]
     Indication: PSYCHOTIC DISORDER
     Dosage: 150 MG TOTAL DAILY
     Route: 048
     Dates: end: 20090201
  7. SERESTA [Concomitant]
     Dosage: 62.5 MG TOTAL DAILY
     Route: 048
     Dates: start: 20090201
  8. CLOPIXOL [Suspect]
     Indication: PSYCHOTIC DISORDER
     Route: 048
     Dates: end: 20090201
  9. CLOPIXOL [Suspect]
     Dosage: 75 MG TOTAL DAILY
     Route: 048
     Dates: start: 20090201
  10. NOCTRAN 10 [Suspect]
     Indication: PSYCHOTIC DISORDER
     Route: 048
     Dates: end: 20090201

REACTIONS (5)
  - AGITATION [None]
  - EXTRAPYRAMIDAL DISORDER [None]
  - GENERAL PHYSICAL HEALTH DETERIORATION [None]
  - MUTISM [None]
  - PAIN [None]
